FAERS Safety Report 10717073 (Version 4)
Quarter: 2015Q4

REPORT INFORMATION
  Report Type: Spontaneous
  Country: US (occurrence: US)
  Receive Date: 20150116
  Receipt Date: 20151013
  Transmission Date: 20160304
  Serious: Yes (Hospitalization)
  Sender: FDA-Public Use
  Company Number: US-PFIZER INC-2015015272

PATIENT
  Age: 80 Year
  Sex: Male
  Weight: 70 kg

DRUGS (13)
  1. LIALDA [Concomitant]
     Active Substance: MESALAMINE
     Dosage: 1.2 G (3 QD WITH MEALS)
  2. SYNTHROID [Concomitant]
     Active Substance: LEVOTHYROXINE SODIUM
     Indication: HYPOTHYROIDISM
     Dosage: 0.15 MG, DAILY
     Route: 048
  3. LIPITOR [Concomitant]
     Active Substance: ATORVASTATIN CALCIUM
     Dosage: 20 MG, DAILY
  4. OXYCODONE/PARACETAMOL [Concomitant]
     Indication: PAIN
     Dosage: 10MG/325MG (1/2-1 TABS Q4-6 HR)
     Route: 048
  5. SYNTHROID [Concomitant]
     Active Substance: LEVOTHYROXINE SODIUM
     Dosage: 0.2 MG, 1X/DAY
     Route: 048
  6. OMEPRAZOLE. [Concomitant]
     Active Substance: OMEPRAZOLE
     Dosage: 40 MG, DAILY
     Route: 048
  7. PREDNISONE. [Concomitant]
     Active Substance: PREDNISONE
     Dosage: 10 MG (TAPERING DOSE)
  8. TIKOSYN [Suspect]
     Active Substance: DOFETILIDE
     Dosage: 250 ?G, 1X/DAY
  9. LISINOPRIL. [Concomitant]
     Active Substance: LISINOPRIL
     Dosage: 10 MG, DAILY
     Route: 048
  10. TIKOSYN [Suspect]
     Active Substance: DOFETILIDE
     Indication: ATRIAL FIBRILLATION
     Dosage: 250 ?G, 2X/DAY
     Route: 048
     Dates: start: 20140824
  11. AMBIEN [Concomitant]
     Active Substance: ZOLPIDEM TARTRATE
     Dosage: UNK
  12. XANAX [Concomitant]
     Active Substance: ALPRAZOLAM
     Dosage: 0.25 MG, AS NEEDED
  13. TAMSULOSIN HYDROCHLORIDE. [Concomitant]
     Active Substance: TAMSULOSIN HYDROCHLORIDE
     Dosage: 0.4 MG (1-2 QD)

REACTIONS (5)
  - Atrial fibrillation [Unknown]
  - Palpitations [Unknown]
  - Atrial fibrillation [Recovered/Resolved]
  - Atrial fibrillation [Unknown]
  - Intentional product use issue [Unknown]

NARRATIVE: CASE EVENT DATE: 2014
